FAERS Safety Report 19169327 (Version 1)
Quarter: 2021Q2

REPORT INFORMATION
  Report Type: Spontaneous
  Country: GB (occurrence: GB)
  Receive Date: 20210422
  Receipt Date: 20210422
  Transmission Date: 20210717
  Serious: Yes (Hospitalization)
  Sender: FDA-Public Use
  Company Number: GB-TEVA-2021-GB-1902127

PATIENT
  Sex: Male

DRUGS (7)
  1. RIVASTIGMINE. [Suspect]
     Active Substance: RIVASTIGMINE
     Indication: DEMENTIA
     Dosage: 9.5MG/24HOURS, APPLY ONE PATCH EVERY 24 HOURS? HELD
     Route: 065
  2. ATORVASTATIN [Concomitant]
     Active Substance: ATORVASTATIN
     Dosage: ON
  3. DOXAZOSIN [Concomitant]
     Active Substance: DOXAZOSIN MESYLATE
     Dosage: OM
  4. RAMIPRIL. [Concomitant]
     Active Substance: RAMIPRIL
     Dosage: OM
  5. AMLODIPINE [Concomitant]
     Active Substance: AMLODIPINE BESYLATE
     Dosage: OM
  6. BIMATOPROST. [Concomitant]
     Active Substance: BIMATOPROST
     Dosage: ONE DROP TO BE USED AT NIGHT IN TO THE LEFT EYE
  7. RIVAROXABAN [Concomitant]
     Active Substance: RIVAROXABAN
     Dosage: OM

REACTIONS (1)
  - Atrial fibrillation [Recovered/Resolved with Sequelae]
